APPROVED DRUG PRODUCT: ZOLEDRONIC ACID
Active Ingredient: ZOLEDRONIC ACID
Strength: EQ 4MG BASE/5ML
Dosage Form/Route: INJECTABLE;INTRAVENOUS
Application: A091516 | Product #001 | TE Code: AP
Applicant: FRESENIUS KABI USA LLC
Approved: Apr 23, 2015 | RLD: No | RS: No | Type: RX